FAERS Safety Report 7783029-5 (Version None)
Quarter: 2011Q3

REPORT INFORMATION
  Report Type: 
  Country: None (occurrence: None)
  Receive Date: 20110926
  Receipt Date: 20110914
  Transmission Date: 20111222
  Serious: Yes (Hospitalization)
  Sender: FDA-Public Use
  Company Number: DSA_47647_2011

PATIENT
  Age: 36 Year
  Sex: Male

DRUGS (4)
  1. LACIDIPINE (LACIDIPINE) [Suspect]
     Indication: PRODUCT USED FOR UNKNOWN INDICATION
     Dosage: (UNKNOWN DOSE X1)
  2. SERTRALINE HYDROCHLORIDE [Suspect]
     Indication: PRODUCT USED FOR UNKNOWN INDICATION
     Dosage: (UNKNOWN DOSE X 1)
  3. ATENOLOL [Suspect]
     Indication: PRODUCT USED FOR UNKNOWN INDICATION
     Dosage: (10 G X 1)
  4. NIFEDIPINE [Suspect]
     Indication: PRODUCT USED FOR UNKNOWN INDICATION
     Dosage: (UNKNOWN DOSE X1)

REACTIONS (35)
  - DYSPNOEA [None]
  - ELECTROCARDIOGRAM QT PROLONGED [None]
  - CONTINUOUS HAEMODIAFILTRATION [None]
  - POOR PERIPHERAL CIRCULATION [None]
  - LEFT VENTRICULAR DYSFUNCTION [None]
  - BLOOD POTASSIUM DECREASED [None]
  - HYPERKALAEMIA [None]
  - MULTI-ORGAN FAILURE [None]
  - CEREBRAL ISCHAEMIA [None]
  - MOTOR DYSFUNCTION [None]
  - TOXICITY TO VARIOUS AGENTS [None]
  - CARDIAC FAILURE [None]
  - VENTRICULAR HYPOKINESIA [None]
  - NO THERAPEUTIC RESPONSE [None]
  - NEUROLOGICAL DECOMPENSATION [None]
  - SKIN INJURY [None]
  - COORDINATION ABNORMAL [None]
  - APHASIA [None]
  - CARDIAC ARREST [None]
  - MULTIPLE DRUG OVERDOSE INTENTIONAL [None]
  - LEFT VENTRICULAR HYPERTROPHY [None]
  - HAEMODYNAMIC INSTABILITY [None]
  - SHOCK [None]
  - LOSS OF CONSCIOUSNESS [None]
  - RENAL FAILURE [None]
  - SINUS BRADYCARDIA [None]
  - PULMONARY OEDEMA [None]
  - SKIN LESION [None]
  - ATAXIA [None]
  - HYPOXIA [None]
  - GENERAL PHYSICAL HEALTH DETERIORATION [None]
  - LACTIC ACIDOSIS [None]
  - HYPOTENSION [None]
  - ELECTROCARDIOGRAM QRS COMPLEX PROLONGED [None]
  - RHABDOMYOLYSIS [None]
